FAERS Safety Report 4917026-1 (Version None)
Quarter: 2006Q1

REPORT INFORMATION
  Report Type: 
  Country: None (occurrence: None)
  Receive Date: 20060221
  Receipt Date: 20051206
  Transmission Date: 20060701
  Serious: Yes (Disabling)
  Sender: FDA-Public Use
  Company Number: 2005CG02046

PATIENT
  Age: 45 Year
  Sex: Male

DRUGS (2)
  1. NAROPIN [Suspect]
     Indication: LOCAL ANAESTHESIA
     Route: 053
     Dates: start: 20051001, end: 20051001
  2. LAMICTAL [Concomitant]
     Indication: EPILEPSY
     Dates: start: 20050601

REACTIONS (1)
  - PERIPHERAL SENSORY NEUROPATHY [None]
